FAERS Safety Report 25373637 (Version 1)
Quarter: 2025Q2

REPORT INFORMATION
  Report Type: Spontaneous
  Country: US (occurrence: None)
  Receive Date: 20250528
  Receipt Date: 20250528
  Transmission Date: 20250717
  Serious: Yes (Hospitalization)
  Sender: FDA-CTU
  Company Number: None

PATIENT
  Age: 65 Year
  Sex: Female

DRUGS (2)
  1. KISQALI [Suspect]
     Active Substance: RIBOCICLIB SUCCINATE
     Indication: Breast cancer female
  2. ELIQUIS [Suspect]
     Active Substance: APIXABAN

REACTIONS (5)
  - Hypoaesthesia [None]
  - Arthralgia [None]
  - Neuropathy peripheral [None]
  - Deep vein thrombosis [None]
  - Drug interaction [None]
